FAERS Safety Report 10541856 (Version 3)
Quarter: 2015Q2

REPORT INFORMATION
  Report Type: Report from Study
  Country: DE (occurrence: DE)
  Receive Date: 20141024
  Receipt Date: 20150625
  Transmission Date: 20150821
  Serious: Yes (Hospitalization)
  Sender: FDA-Public Use
  Company Number: DE-GLAXOSMITHKLINE-DE2014GSK005719

PATIENT

DRUGS (7)
  1. PROTELOS [Concomitant]
     Active Substance: STRONTIUM RANELATE
     Dosage: 2 MG, QD
     Dates: start: 201310
  2. NOVALGIN [Concomitant]
     Active Substance: METAMIZOLE SODIUM
     Dosage: 20 G, TID
     Dates: start: 201310
  3. COTRIMOXAZOL [Concomitant]
     Active Substance: SULFAMETHOXAZOLE\TRIMETHOPRIM
     Dosage: UNK UNK, TID
     Dates: start: 20140725
  4. AAS 100 [Concomitant]
     Dosage: 100 MG, QD
     Route: 048
     Dates: start: 2011
  5. EUTHYROX [Concomitant]
     Active Substance: LEVOTHYROXINE SODIUM
     Dosage: 137 MG, QD
     Dates: start: 2011
  6. TOREM [Concomitant]
     Active Substance: TORSEMIDE
     Dosage: 10 MG, QD
     Dates: start: 201310
  7. PAZOPANIB [Suspect]
     Active Substance: PAZOPANIB
     Indication: RENAL CELL CARCINOMA
     Dosage: 600 MG, QD
     Route: 048
     Dates: start: 20140415

REACTIONS (1)
  - Suture related complication [Recovered/Resolved]

NARRATIVE: CASE EVENT DATE: 20141007
